FAERS Safety Report 6696368-6 (Version None)
Quarter: 2010Q2

REPORT INFORMATION
  Report Type: 
  Country: None (occurrence: None)
  Receive Date: 20100426
  Receipt Date: 20100422
  Transmission Date: 20101027
  Serious: Yes (Other)
  Sender: FDA-Public Use
  Company Number: DE-ABBOTT-10P-062-0640183-00

PATIENT
  Age: 36 Year
  Sex: Female

DRUGS (1)
  1. ERGENYL [Suspect]
     Indication: DRUG USE FOR UNKNOWN INDICATION
     Route: 048

REACTIONS (1)
  - CELL-MEDIATED IMMUNE DEFICIENCY [None]
